FAERS Safety Report 20435503 (Version 9)
Quarter: 2022Q2

REPORT INFORMATION
  Report Type: Report from Study
  Country: US (occurrence: US)
  Receive Date: 20220206
  Receipt Date: 20220616
  Transmission Date: 20220720
  Serious: No
  Sender: FDA-Public Use
  Company Number: US-NOVARTISTESTPH-NVSC2022US024986

PATIENT
  Age: 78 Year
  Sex: Female

DRUGS (2)
  1. KISQALI FEMARA CO-PACK [Suspect]
     Active Substance: LETROZOLE\RIBOCICLIB
     Indication: Breast cancer
     Dosage: 200 MG, QD
     Route: 048
     Dates: start: 202107
  2. KISQALI FEMARA CO-PACK [Suspect]
     Active Substance: LETROZOLE\RIBOCICLIB
     Dosage: 600 MG
     Route: 048
     Dates: start: 202109

REACTIONS (8)
  - Laboratory test abnormal [Unknown]
  - Tumour marker increased [Unknown]
  - Nail ridging [Unknown]
  - Product dose omission issue [Unknown]
  - Weight increased [Unknown]
  - Alopecia [Unknown]
  - Tumour marker decreased [Unknown]
  - Renal function test abnormal [Unknown]

NARRATIVE: CASE EVENT DATE: 20220211
